FAERS Safety Report 6656653-0 (Version None)
Quarter: 2010Q1

REPORT INFORMATION
  Report Type: 
  Country: None (occurrence: None)
  Receive Date: 20100329
  Receipt Date: 20100318
  Transmission Date: 20100710
  Serious: Yes (Hospitalization)
  Sender: FDA-Public Use
  Company Number: JP-BAXTER-2010BH003204

PATIENT
  Age: 67 Year
  Sex: Female

DRUGS (31)
  1. ENDOXAN BAXTER [Suspect]
     Indication: LYMPHOMA
     Route: 041
     Dates: start: 20091218, end: 20091218
  2. ENDOXAN BAXTER [Suspect]
     Route: 041
     Dates: start: 20091106, end: 20091106
  3. ENDOXAN BAXTER [Suspect]
     Route: 041
     Dates: start: 20091013, end: 20091013
  4. ENDOXAN BAXTER [Suspect]
     Route: 041
     Dates: start: 20090918, end: 20090918
  5. ENDOXAN BAXTER [Suspect]
     Route: 041
     Dates: start: 20090826, end: 20090826
  6. ENDOXAN BAXTER [Suspect]
     Route: 041
     Dates: start: 20090803, end: 20090803
  7. PL [Suspect]
     Indication: NASOPHARYNGITIS
     Route: 048
     Dates: start: 20100104, end: 20100106
  8. BAKTAR [Suspect]
     Indication: INFECTION PROPHYLAXIS
     Route: 048
     Dates: start: 20090814, end: 20100114
  9. PREDNISOLONE [Suspect]
     Indication: PROPHYLAXIS OF NAUSEA AND VOMITING
     Route: 048
     Dates: start: 20090803, end: 20091222
  10. PREDNISOLONE [Suspect]
     Route: 048
     Dates: end: 20090801
  11. RAMOSETRON HYDROCHLORIDE [Suspect]
     Indication: PROPHYLAXIS OF NAUSEA AND VOMITING
     Route: 048
     Dates: start: 20090803, end: 20100114
  12. KETOPROFEN [Suspect]
     Indication: BACK PAIN
     Route: 065
  13. VINCRISTINE SULFATE [Suspect]
     Indication: LYMPHOMA
     Route: 041
     Dates: start: 20090803, end: 20100114
  14. DOXORUBICIN HCL [Suspect]
     Indication: LYMPHOMA
     Route: 041
     Dates: start: 20090803, end: 20100114
  15. ELCITONIN [Concomitant]
     Indication: OSTEOPOROSIS
     Route: 030
     Dates: start: 20091102, end: 20100308
  16. LOXONIN [Concomitant]
     Indication: RHEUMATOID ARTHRITIS
     Route: 048
     Dates: start: 19980101, end: 20100114
  17. PARIET [Concomitant]
     Indication: PROPHYLAXIS
     Route: 048
     Dates: start: 19980101, end: 20100114
  18. FLUCONAZOLE [Concomitant]
     Indication: WHITE BLOOD CELL COUNT DECREASED
     Route: 048
     Dates: start: 20090814, end: 20100114
  19. ALINAMIN F [Concomitant]
     Indication: DRUG USE FOR UNKNOWN INDICATION
     Route: 048
  20. ALENDRONATE SODIUM [Concomitant]
     Indication: DRUG USE FOR UNKNOWN INDICATION
     Route: 048
  21. ALOSENN [Concomitant]
     Indication: DRUG USE FOR UNKNOWN INDICATION
     Route: 048
  22. POSTERISAN [Concomitant]
     Indication: DRUG USE FOR UNKNOWN INDICATION
     Route: 065
  23. SELBEX [Concomitant]
     Indication: DRUG USE FOR UNKNOWN INDICATION
     Route: 048
  24. LAMISIL                            /00992601/ [Concomitant]
     Indication: DRUG USE FOR UNKNOWN INDICATION
     Route: 065
  25. IMURAN [Concomitant]
     Indication: DRUG USE FOR UNKNOWN INDICATION
     Route: 048
     Dates: end: 20090801
  26. ISODINE [Concomitant]
     Indication: DRUG USE FOR UNKNOWN INDICATION
     Route: 048
  27. MYTEAR [Concomitant]
     Indication: DRUG USE FOR UNKNOWN INDICATION
     Route: 031
  28. XYLOCAINE [Concomitant]
     Indication: EPIDURAL ANAESTHESIA
     Route: 008
  29. RINDERON [Concomitant]
     Indication: EPIDURAL ANAESTHESIA
     Route: 008
  30. NEO VITACAIN [Concomitant]
     Indication: EPIDURAL ANAESTHESIA
     Route: 008
  31. SEISHOKU [Concomitant]
     Indication: EPIDURAL ANAESTHESIA
     Route: 008

REACTIONS (5)
  - HEADACHE [None]
  - HEPATITIS ACUTE [None]
  - RHINORRHOEA [None]
  - SNEEZING [None]
  - WHITE BLOOD CELL COUNT DECREASED [None]
